FAERS Safety Report 10249325 (Version 1)
Quarter: 2014Q2

REPORT INFORMATION
  Report Type: Spontaneous
  Country: TW (occurrence: None)
  Receive Date: 20140618
  Receipt Date: 20140618
  Transmission Date: 20141212
  Serious: Yes (Other)
  Sender: FDA-Public Use
  Company Number: TW-DEXPHARM-20140330

PATIENT
  Age: 86 Year
  Sex: Male

DRUGS (1)
  1. DICLOFENAC [Suspect]

REACTIONS (2)
  - Stevens-Johnson syndrome [None]
  - Toxic epidermal necrolysis [None]
